FAERS Safety Report 10248119 (Version 1)
Quarter: 2014Q2

REPORT INFORMATION
  Report Type: Spontaneous
  Country: CA (occurrence: CA)
  Receive Date: 20140619
  Receipt Date: 20140619
  Transmission Date: 20141212
  Serious: Yes (Other)
  Sender: FDA-Public Use
  Company Number: CA-MERCK-1406CAN005905

PATIENT
  Age: 82 Year
  Sex: Female

DRUGS (1)
  1. EZETROL [Suspect]
     Indication: BLOOD CHOLESTEROL
     Dosage: UNK UNK, DAILY
     Route: 048
     Dates: start: 200712

REACTIONS (1)
  - Macular degeneration [Unknown]
